FAERS Safety Report 7404791-7 (Version None)
Quarter: 2011Q2

REPORT INFORMATION
  Report Type: 
  Country: None (occurrence: None)
  Receive Date: 20110411
  Receipt Date: 20110314
  Transmission Date: 20111010
  Serious: Yes (Other)
  Sender: FDA-Public Use
  Company Number: US-BAYER-201040530NA

PATIENT
  Age: 31 Year
  Sex: Female

DRUGS (7)
  1. PROMETHAZINE [Concomitant]
  2. OCELLA [Suspect]
     Indication: ACNE
  3. PROTONIX [Concomitant]
  4. YASMIN [Suspect]
     Indication: ACNE
  5. FLAGYL [Concomitant]
  6. YAZ [Suspect]
     Indication: ACNE
  7. DARVOCET [Concomitant]

REACTIONS (3)
  - INJURY [None]
  - CHOLELITHIASIS [None]
  - CHOLECYSTITIS ACUTE [None]
